FAERS Safety Report 7246406-7 (Version None)
Quarter: 2011Q1

REPORT INFORMATION
  Report Type: 
  Country: None (occurrence: None)
  Receive Date: 20110126
  Receipt Date: 20100603
  Transmission Date: 20110831
  Serious: No
  Sender: FDA-Public Use
  Company Number: US-BAUSCH-2010BL002969

PATIENT
  Age: 75 Year
  Sex: Female
  Weight: 56 kg

DRUGS (1)
  1. ZYLET [Suspect]
     Indication: HORDEOLUM
     Route: 047
     Dates: start: 20100528

REACTIONS (1)
  - INSTILLATION SITE PAIN [None]
